FAERS Safety Report 8808877 (Version 1)
Quarter: 2012Q4

REPORT INFORMATION
  Report Type: Spontaneous
  Country: US (occurrence: None)
  Receive Date: 20120920
  Receipt Date: 20120920
  Transmission Date: 20130627
  Serious: Yes (Death)
  Sender: FDA-Public Use
  Company Number: None

PATIENT
  Age: 60 Year
  Sex: Male
  Weight: 88.91 kg

DRUGS (1)
  1. INCIVEK [Suspect]
     Indication: HEPATITIS C
     Dosage: 2 tablets, every 7-9 hour, po
     Route: 048
     Dates: start: 20120211, end: 20120228

REACTIONS (8)
  - Neutropenia [None]
  - Hepatic encephalopathy [None]
  - Haemoglobin decreased [None]
  - Haematemesis [None]
  - Klebsiella test positive [None]
  - Respiratory failure [None]
  - Septic shock [None]
  - Acute respiratory distress syndrome [None]
